FAERS Safety Report 10254662 (Version 1)
Quarter: 2014Q2

REPORT INFORMATION
  Report Type: Spontaneous
  Country: FR (occurrence: FR)
  Receive Date: 20140624
  Receipt Date: 20140624
  Transmission Date: 20141212
  Serious: Yes (Other)
  Sender: FDA-Public Use
  Company Number: FR-ASTRAZENECA-2014SE45609

PATIENT
  Sex: Female

DRUGS (8)
  1. XEROQUEL [Suspect]
     Indication: OBSESSIVE-COMPULSIVE DISORDER
     Route: 048
     Dates: start: 20140117, end: 20140131
  2. XEROQUEL [Suspect]
     Indication: OBSESSIVE-COMPULSIVE DISORDER
     Route: 048
     Dates: start: 20140131, end: 20140228
  3. XEROQUEL [Suspect]
     Indication: OBSESSIVE-COMPULSIVE DISORDER
     Route: 048
     Dates: start: 20140528
  4. XEROQUEL [Suspect]
     Indication: OBSESSIVE-COMPULSIVE DISORDER
     Route: 048
     Dates: start: 20131213, end: 20131213
  5. XEROQUEL [Suspect]
     Indication: OBSESSIVE-COMPULSIVE DISORDER
     Route: 048
     Dates: start: 20131214, end: 20131214
  6. XEROQUEL [Suspect]
     Indication: OBSESSIVE-COMPULSIVE DISORDER
     Route: 048
     Dates: start: 20131215, end: 20140117
  7. FLUOXETINE [Concomitant]
     Indication: OBSESSIVE-COMPULSIVE DISORDER
     Route: 048
     Dates: start: 20140605
  8. TRANXENE [Concomitant]
     Indication: OBSESSIVE-COMPULSIVE DISORDER
     Route: 048

REACTIONS (2)
  - Deep vein thrombosis [Not Recovered/Not Resolved]
  - Off label use [Not Recovered/Not Resolved]
